FAERS Safety Report 8955599 (Version 1)
Quarter: 2012Q4

REPORT INFORMATION
  Report Type: 
  Country: IN (occurrence: IN)
  Receive Date: 20121210
  Receipt Date: 20121210
  Transmission Date: 20130627
  Serious: Yes (Other)
  Sender: FDA-Public Use
  Company Number: IN-MERCK-1212IND002522

PATIENT

DRUGS (1)
  1. JANUMET [Suspect]
     Route: 048

REACTIONS (3)
  - Asthenia [Unknown]
  - Dizziness [Unknown]
  - Paraesthesia [Unknown]
